FAERS Safety Report 12693918 (Version 2)
Quarter: 2016Q3

REPORT INFORMATION
  Report Type: Spontaneous
  Country: US (occurrence: US)
  Receive Date: 20160829
  Receipt Date: 20160909
  Transmission Date: 20161109
  Serious: No
  Sender: FDA-Public Use
  Company Number: US-009507513-1608USA011107

PATIENT
  Age: 12 Year
  Sex: Male

DRUGS (1)
  1. NASONEX [Suspect]
     Active Substance: MOMETASONE FUROATE
     Dosage: UNK
     Route: 055
     Dates: start: 20160818

REACTIONS (2)
  - Nasal congestion [Unknown]
  - Expired product administered [Unknown]

NARRATIVE: CASE EVENT DATE: 20160818
